FAERS Safety Report 19237824 (Version 1)
Quarter: 2021Q2

REPORT INFORMATION
  Report Type: Spontaneous
  Country: US (occurrence: US)
  Receive Date: 20210510
  Receipt Date: 20210510
  Transmission Date: 20210717
  Serious: No
  Sender: FDA-Public Use
  Company Number: US-AUROBINDO-AUR-APL-2020-030622

PATIENT
  Sex: Male

DRUGS (1)
  1. DEXTROMETHORPHAN HYDROBROMIDE AND GUAIFENESIN [Suspect]
     Active Substance: DEXTROMETHORPHAN HYDROBROMIDE\GUAIFENESIN
     Indication: CHEST DISCOMFORT
     Dosage: 1 DOSAGE FORM, ONCE A DAY AT BED TIME
     Route: 065
     Dates: start: 20200604

REACTIONS (2)
  - Feeling abnormal [Recovering/Resolving]
  - Daydreaming [Recovering/Resolving]

NARRATIVE: CASE EVENT DATE: 20200604
